FAERS Safety Report 25235795 (Version 1)
Quarter: 2025Q2

REPORT INFORMATION
  Report Type: Spontaneous
  Country: US (occurrence: None)
  Receive Date: 20250424
  Receipt Date: 20250424
  Transmission Date: 20250716
  Serious: No
  Sender: FDA-CTU
  Company Number: None

PATIENT
  Age: 71 Year
  Sex: Female

DRUGS (6)
  1. REPATHA [Suspect]
     Active Substance: EVOLOCUMAB
     Indication: Low density lipoprotein increased
     Route: 030
     Dates: start: 20250118, end: 20250331
  2. Losarten Potassium [Concomitant]
  3. ER Diltiazem [Concomitant]
  4. FISH OIL [Concomitant]
     Active Substance: FISH OIL
  5. CALCIUM\MAGNESIUM [Concomitant]
     Active Substance: CALCIUM\MAGNESIUM
  6. Vitamin D + K2 [Concomitant]

REACTIONS (5)
  - Muscular weakness [None]
  - Arthralgia [None]
  - Condition aggravated [None]
  - Blood pressure increased [None]
  - Therapy cessation [None]

NARRATIVE: CASE EVENT DATE: 20250331
